FAERS Safety Report 11500944 (Version 1)
Quarter: 2015Q3

REPORT INFORMATION
  Report Type: Spontaneous
  Country: US (occurrence: None)
  Receive Date: 20150911
  Receipt Date: 20150911
  Transmission Date: 20151125
  Serious: No
  Sender: FDA-Public Use
  Company Number: None

PATIENT
  Age: 53 Year
  Sex: Female
  Weight: 90.72 kg

DRUGS (4)
  1. SEROQUEL [Suspect]
     Active Substance: QUETIAPINE FUMARATE
     Indication: DEPRESSION
     Dosage: 1 TAB  ONCE DAILY  TAKEN BY MOUTH
     Route: 048
     Dates: start: 20130501, end: 20150803
  2. SYNTHROID [Concomitant]
     Active Substance: LEVOTHYROXINE SODIUM
  3. SEROQUEL [Suspect]
     Active Substance: QUETIAPINE FUMARATE
     Indication: ANXIETY
     Dosage: 1 TAB  ONCE DAILY  TAKEN BY MOUTH
     Route: 048
     Dates: start: 20130501, end: 20150803
  4. PRAVASTATIN [Concomitant]
     Active Substance: PRAVASTATIN\PRAVASTATIN SODIUM

REACTIONS (3)
  - Nightmare [None]
  - Brain injury [None]
  - Insomnia [None]

NARRATIVE: CASE EVENT DATE: 20150803
